FAERS Safety Report 7241424-7 (Version None)
Quarter: 2011Q1

REPORT INFORMATION
  Report Type: 
  Country: None (occurrence: None)
  Receive Date: 20110124
  Receipt Date: 20110110
  Transmission Date: 20110831
  Serious: Yes (Other)
  Sender: FDA-Public Use
  Company Number: GXKR2010GB11390

PATIENT
  Age: 60 Year
  Sex: Female

DRUGS (5)
  1. CITALOPRAM HYDROBROMIDE [Suspect]
  2. TRAMADOL HYDROCHLORIDE [Suspect]
  3. BETAHISTINE [Suspect]
  4. OMEPRAZOLE [Suspect]
     Indication: GASTRITIS
     Dosage: INTERMITTENTLY
     Route: 065
     Dates: start: 20050201, end: 20070101
  5. OMEPRAZOLE [Suspect]
     Dosage: CONSISTENTLY
     Route: 065
     Dates: end: 20080319

REACTIONS (13)
  - TUBULOINTERSTITIAL NEPHRITIS [None]
  - PROTEINURIA [None]
  - GLOMERULAR FILTRATION RATE DECREASED [None]
  - NEUROPATHY PERIPHERAL [None]
  - FATIGUE [None]
  - URINE PROTEIN/CREATININE RATIO INCREASED [None]
  - VOMITING [None]
  - BLOOD URINE PRESENT [None]
  - GASTRIC ULCER [None]
  - RENAL FAILURE CHRONIC [None]
  - DECREASED APPETITE [None]
  - NAUSEA [None]
  - THIRST [None]
